FAERS Safety Report 6389077-4 (Version None)
Quarter: 2009Q4

REPORT INFORMATION
  Report Type: 
  Country: None (occurrence: None)
  Receive Date: 20091006
  Receipt Date: 20090921
  Transmission Date: 20100525
  Serious: Yes (Other)
  Sender: FDA-Public Use
  Company Number: PHHY2009PL40624

PATIENT
  Sex: Female
  Weight: 60 kg

DRUGS (5)
  1. SANDIMMUNE [Suspect]
     Indication: RHEUMATOID ARTHRITIS
     Dosage: 125 MG DAILY
     Route: 048
     Dates: start: 20080101, end: 20080101
  2. POLPRAZOL [Concomitant]
     Dosage: UNK
  3. METYPRED [Concomitant]
  4. ARAVA [Concomitant]
  5. NSAID'S [Concomitant]

REACTIONS (5)
  - ALOPECIA [None]
  - FATIGUE [None]
  - GASTROINTESTINAL DISORDER [None]
  - HEADACHE [None]
  - HIRSUTISM [None]
